FAERS Safety Report 11427946 (Version 3)
Quarter: 2015Q4

REPORT INFORMATION
  Report Type: Spontaneous
  Country: JP (occurrence: JP)
  Receive Date: 20150828
  Receipt Date: 20151230
  Transmission Date: 20160304
  Serious: Yes (Hospitalization)
  Sender: FDA-Public Use
  Company Number: JP-ROCHE-1627515

PATIENT
  Age: 66 Year
  Sex: Female
  Weight: 71 kg

DRUGS (6)
  1. ALFAROL [Concomitant]
     Active Substance: ALFACALCIDOL
     Route: 048
  2. ZYLORIC [Concomitant]
     Active Substance: ALLOPURINOL
     Route: 048
  3. CONIEL [Concomitant]
     Active Substance: BENIDIPINE HYDROCHLORIDE
     Route: 048
  4. LUCENTIS [Suspect]
     Active Substance: RANIBIZUMAB
     Indication: RETINAL VEIN OCCLUSION
     Dosage: 10 MG/ML?MOST RECENT DOSE PRIOR TO SAE: 16/JUL/2015
     Route: 050
     Dates: start: 20150611
  5. BLOPRESS [Concomitant]
     Active Substance: CANDESARTAN CILEXETIL
     Route: 048
  6. ADALAT [Concomitant]
     Active Substance: NIFEDIPINE
     Route: 048

REACTIONS (1)
  - Cerebellar infarction [Recovering/Resolving]

NARRATIVE: CASE EVENT DATE: 20150817
